FAERS Safety Report 8540639-5 (Version None)
Quarter: 2012Q3

REPORT INFORMATION
  Report Type: 
  Country: None (occurrence: None)
  Receive Date: 20120726
  Receipt Date: 20120716
  Transmission Date: 20120928
  Serious: Yes (Other)
  Sender: FDA-Public Use
  Company Number: US-BRISTOL-MYERS SQUIBB COMPANY-16769135

PATIENT
  Age: 65 Year
  Sex: Male
  Weight: 109 kg

DRUGS (4)
  1. AVAPRO [Suspect]
     Dosage: INTER JUN-2012.
  2. HYDROCHLOROTHIAZIDE [Concomitant]
  3. AVALIDE [Suspect]
     Dosage: 1DF:300/12.5 MG, INTER ON AN UNSPECIFIED DATE AND RESTARTED AGAIN IN JUN2012.
  4. LASIX [Concomitant]

REACTIONS (5)
  - ARTHRITIS [None]
  - SWELLING [None]
  - CATARACT [None]
  - LUNG DISORDER [None]
  - WEIGHT INCREASED [None]
